FAERS Safety Report 4838061-8 (Version None)
Quarter: 2005Q4

REPORT INFORMATION
  Report Type: 
  Country: None (occurrence: None)
  Receive Date: 20051128
  Receipt Date: 20051118
  Transmission Date: 20060501
  Serious: Yes (Hospitalization)
  Sender: FDA-Public Use
  Company Number: PHBS2005JP16982

PATIENT
  Sex: Female

DRUGS (3)
  1. NORVASC [Concomitant]
     Dosage: 10 MG, UNK
     Route: 048
  2. LASIX [Concomitant]
     Indication: PYELONEPHRITIS
     Dosage: 20 MG, UNK
     Route: 048
     Dates: start: 20050501
  3. LOPRESSOR [Suspect]
     Dosage: 1 DF, QD
     Route: 048

REACTIONS (1)
  - VASCULAR PURPURA [None]
